FAERS Safety Report 18416644 (Version 2)
Quarter: 2023Q1

REPORT INFORMATION
  Report Type: Spontaneous
  Country: PT (occurrence: PT)
  Receive Date: 20201022
  Receipt Date: 20230330
  Transmission Date: 20230418
  Serious: Yes (Hospitalization, Other)
  Sender: FDA-Public Use
  Company Number: PT-NORGINE LIMITED-NOR202002381

PATIENT
  Age: 84 Year
  Sex: Female

DRUGS (4)
  1. TRAMADOL [Interacting]
     Active Substance: TRAMADOL
     Indication: Cellulitis
     Dosage: UNK
     Route: 065
  2. CIPROFLOXACIN [Interacting]
     Active Substance: CIPROFLOXACIN
     Indication: Cellulitis
     Dosage: UNK
     Route: 065
  3. METAMIZOLE [Interacting]
     Active Substance: METAMIZOLE
     Indication: Cellulitis
     Dosage: UNK
     Route: 065
  4. ACENOCOUMAROL [Interacting]
     Active Substance: ACENOCOUMAROL
     Indication: Anticoagulant therapy
     Dosage: UNK
     Route: 065

REACTIONS (5)
  - Ocular hyperaemia [Unknown]
  - Haematemesis [Unknown]
  - Activated partial thromboplastin time prolonged [Unknown]
  - Blood disorder [Unknown]
  - Drug interaction [Unknown]
